FAERS Safety Report 7366197-9 (Version None)
Quarter: 2011Q1

REPORT INFORMATION
  Report Type: 
  Country: None (occurrence: None)
  Receive Date: 20110322
  Receipt Date: 20110308
  Transmission Date: 20110831
  Serious: Yes (Hospitalization)
  Sender: FDA-Public Use
  Company Number: US-JNJFOC-20100102350

PATIENT
  Sex: Male
  Weight: 59.8 kg

DRUGS (4)
  1. INFLIXIMAB [Suspect]
     Indication: INFLAMMATORY BOWEL DISEASE
     Dosage: TOTAL 22 DOSES
     Route: 042
  2. INFLIXIMAB [Suspect]
     Route: 042
  3. MESALAMINE [Concomitant]
  4. METRONIDAZOLE [Concomitant]

REACTIONS (1)
  - PERIRECTAL ABSCESS [None]
